FAERS Safety Report 9822531 (Version 6)
Quarter: 2015Q1

REPORT INFORMATION
  Report Type: Spontaneous
  Country: GB (occurrence: GB)
  Receive Date: 20140116
  Receipt Date: 20150202
  Transmission Date: 20150721
  Serious: Yes (Hospitalization)
  Sender: FDA-Public Use
  Company Number: PHFR2014GB000624

PATIENT
  Age: 44 Year
  Sex: Male
  Weight: 79 kg

DRUGS (12)
  1. CLOZARIL [Suspect]
     Active Substance: CLOZAPINE
     Dosage: UNK
     Route: 048
     Dates: start: 20140112, end: 20140112
  2. BETNOVATE [Concomitant]
     Active Substance: BETAMETHASONE
     Indication: SKIN DISORDER
     Dosage: UNK, BID
     Route: 061
     Dates: start: 20130724
  3. COLECALCIFEROL [Concomitant]
     Active Substance: CHOLECALCIFEROL
     Indication: VITAMIN SUPPLEMENTATION
     Dosage: 400 MG, UNK
     Route: 048
     Dates: start: 20130822
  4. HYOSCINE HYDROBROMIDE [Concomitant]
     Active Substance: SCOPOLAMINE
     Indication: SALIVARY HYPERSECRETION
     Dosage: 300 MG, DAILY
     Route: 048
     Dates: start: 20131212
  5. CLOZARIL [Suspect]
     Active Substance: CLOZAPINE
     Indication: SCHIZOPHRENIA
     Dosage: 400 MG, DAILY (200 MG MANE AND 200 MG NOCTE)
     Route: 048
     Dates: start: 20131118
  6. AMISULPRIDE [Concomitant]
     Active Substance: AMISULPRIDE
     Indication: PRODUCT USED FOR UNKNOWN INDICATION
     Dosage: 100 MG, BID
     Route: 065
  7. FLUOXETINE [Concomitant]
     Active Substance: FLUOXETINE\FLUOXETINE HYDROCHLORIDE
     Indication: DEPRESSION
     Dosage: 20 MG, DAILY
     Route: 048
     Dates: start: 20130530
  8. LACTULOSE. [Concomitant]
     Active Substance: LACTULOSE
     Indication: CONSTIPATION
     Dosage: 15 ML, DAILY
     Route: 048
     Dates: start: 20131128
  9. SENNA [Concomitant]
     Active Substance: SENNA LEAF\SENNOSIDES\SENNOSIDES A AND B
     Indication: CONSTIPATION
     Dosage: UNK, PRN
     Route: 048
     Dates: start: 20131219
  10. EMULSIFYING OINTMENT [Concomitant]
     Indication: SKIN DISORDER
     Dosage: UNK
     Route: 061
  11. PARACETAMOL [Concomitant]
     Active Substance: ACETAMINOPHEN
     Indication: PYREXIA
     Dosage: 10 MG, UNK
     Route: 048
     Dates: start: 20131105
  12. PARACETAMOL [Concomitant]
     Active Substance: ACETAMINOPHEN
     Indication: PAIN

REACTIONS (7)
  - General physical health deterioration [Recovered/Resolved]
  - Ileus [Recovered/Resolved]
  - White blood cell count increased [Recovered/Resolved]
  - Blood creatine phosphokinase increased [Unknown]
  - Antipsychotic drug level above therapeutic [Recovered/Resolved]
  - Pancreatitis acute [Recovered/Resolved with Sequelae]
  - Neutrophil count increased [Unknown]

NARRATIVE: CASE EVENT DATE: 20140110
